FAERS Safety Report 10066591 (Version 1)
Quarter: 2014Q2

REPORT INFORMATION
  Report Type: Spontaneous
  Country: US (occurrence: None)
  Receive Date: 20140401
  Receipt Date: 20140401
  Transmission Date: 20141212
  Serious: Yes (Other)
  Sender: FDA-Public Use
  Company Number: PHEH2013US012091

PATIENT
  Age: 84 Year
  Sex: Female

DRUGS (12)
  1. EXELON PATCH [Suspect]
     Dosage: 13.3 MG (PATCH 15 CM2)/DAY, TRANSDERMAL
     Route: 062
  2. NAMENDA (MEMANTINE HYDROCHLORIDE) [Concomitant]
  3. SIMVASTATIN (SIMVASTATIN) [Concomitant]
  4. LOSARTIN (LOSARTAN POTASSIUM) [Concomitant]
  5. CEREFOLIN (CALCIUM L-METHYLFOLATE, CYANOCOBALAMIN, PYRIDOXINE HYDROCHLORIDE, RIBOFLAVIN) [Concomitant]
  6. HYDROCHLOROTHIAZIDE (HYDROCHLOROTHIAZIDE) [Concomitant]
  7. ASPIRIN LOW (ACETYLSALICYLIC ACID) [Concomitant]
  8. ALPHAGAN (BRIMONIDINE TARTRATE) (BRIMONIDINE TARTRATE) [Concomitant]
  9. LUMIGAN (BIMATOPROST) EYE DROPS [Concomitant]
  10. MULTIVIT (VITAMINS NOS) [Concomitant]
  11. VITAMIN C (ASCORBIC ACID) [Concomitant]
  12. FISH OIL (FISH OIL) [Concomitant]

REACTIONS (2)
  - Weight decreased [None]
  - Decreased appetite [None]
